FAERS Safety Report 8500311-4 (Version None)
Quarter: 2012Q3

REPORT INFORMATION
  Report Type: 
  Country: None (occurrence: None)
  Receive Date: 20120710
  Receipt Date: 20120706
  Transmission Date: 20120928
  Serious: Yes (Death, Hospitalization)
  Sender: FDA-Public Use
  Company Number: US-JNJFOC-20120508830

PATIENT
  Sex: Male
  Weight: 104 kg

DRUGS (6)
  1. XARELTO [Suspect]
     Indication: ATRIAL FIBRILLATION
     Route: 048
     Dates: start: 20120327, end: 20120423
  2. LOPRESSOR [Concomitant]
  3. PENTOXIFYLLINE [Concomitant]
  4. XARELTO [Suspect]
     Indication: CEREBROVASCULAR ACCIDENT PROPHYLAXIS
     Route: 048
     Dates: start: 20120327, end: 20120423
  5. AMIODARONE HCL [Concomitant]
     Dates: start: 20120301
  6. CARDENE [Concomitant]
     Route: 041
     Dates: start: 20120301

REACTIONS (1)
  - CEREBRAL HAEMORRHAGE [None]
